FAERS Safety Report 15652617 (Version 2)
Quarter: 2018Q4

REPORT INFORMATION
  Report Type: Spontaneous
  Country: US (occurrence: US)
  Receive Date: 20181123
  Receipt Date: 20181217
  Transmission Date: 20190205
  Serious: No
  Sender: FDA-Public Use
  Company Number: US-NOVOPROD-575226

PATIENT
  Age: 74 Year
  Sex: Female
  Weight: 81.18 kg

DRUGS (2)
  1. LEVEMIR [Suspect]
     Active Substance: INSULIN DETEMIR
     Indication: DIABETES MELLITUS
     Dosage: 25 U, QD
     Route: 058
     Dates: start: 201704
  2. NOVOLOG [Suspect]
     Active Substance: INSULIN ASPART
     Indication: DIABETES MELLITUS
     Dosage: SLIDING SCALE
     Route: 058
     Dates: start: 201704

REACTIONS (3)
  - Blood glucose increased [Recovered/Resolved]
  - Pain in extremity [Not Recovered/Not Resolved]
  - Hypoaesthesia [Not Recovered/Not Resolved]

NARRATIVE: CASE EVENT DATE: 201704
